FAERS Safety Report 7827559-6 (Version None)
Quarter: 2011Q4

REPORT INFORMATION
  Report Type: 
  Country: None (occurrence: None)
  Receive Date: 20111020
  Receipt Date: 20111018
  Transmission Date: 20120403
  Serious: Yes (Death)
  Sender: FDA-Public Use
  Company Number: PHHY2011FR74289

PATIENT
  Sex: Male
  Weight: 85 kg

DRUGS (2)
  1. ASPIRIN [Concomitant]
     Indication: ARTERIOSCLEROSIS
     Dosage: 160 MG, UNK
  2. RIVASTIGMINE [Suspect]
     Indication: DEMENTIA ALZHEIMER'S TYPE
     Dosage: 9.5 MG/24 HOURS
     Route: 062
     Dates: start: 20101011

REACTIONS (1)
  - DEATH [None]
